FAERS Safety Report 8813736 (Version 1)
Quarter: 2012Q4

REPORT INFORMATION
  Report Type: 
  Country: BR (occurrence: BR)
  Receive Date: 20120928
  Receipt Date: 20120928
  Transmission Date: 20130627
  Serious: Yes (Hospitalization, Other)
  Sender: FDA-Public Use
  Company Number: BR-ROCHE-1137024

PATIENT
  Sex: Male
  Weight: 61.06 kg

DRUGS (8)
  1. XOLAIR [Suspect]
     Indication: ASTHMA
     Route: 065
  2. FORASEQ [Concomitant]
     Dosage: 12/400 mcg
     Route: 065
  3. FORASEQ [Concomitant]
     Dosage: 12/400 mcg
     Route: 065
  4. PREDNISONE [Concomitant]
     Indication: ASTHMA
     Route: 048
  5. BUSONID [Concomitant]
     Indication: RHINITIS
     Route: 045
  6. BAMIFIX [Concomitant]
     Route: 048
     Dates: start: 201207
  7. LOSARTAN [Concomitant]
     Route: 065
     Dates: start: 201207
  8. BEROTEC [Concomitant]
     Indication: ASTHMA
     Dosage: Nasal spray
     Route: 045
     Dates: start: 201207

REACTIONS (3)
  - Asthma [Not Recovered/Not Resolved]
  - Pneumonia [Not Recovered/Not Resolved]
  - Blood pressure increased [Recovered/Resolved]
